FAERS Safety Report 11553529 (Version 1)
Quarter: 2015Q3

REPORT INFORMATION
  Report Type: Report from Study
  Country: AU (occurrence: AU)
  Receive Date: 20150925
  Receipt Date: 20150925
  Transmission Date: 20151125
  Serious: Yes (Hospitalization)
  Sender: FDA-Public Use
  Company Number: PHHY2013AU167098

PATIENT
  Sex: Male

DRUGS (2)
  1. NODOZ [Concomitant]
     Active Substance: CAFFEINE
     Indication: PRODUCT USED FOR UNKNOWN INDICATION
     Route: 065
  2. CLOZARIL [Suspect]
     Active Substance: CLOZAPINE
     Indication: PRODUCT USED FOR UNKNOWN INDICATION
     Route: 065

REACTIONS (3)
  - Antipsychotic drug level above therapeutic [Recovered/Resolved]
  - Psychotic disorder [Unknown]
  - Antipsychotic drug level below therapeutic [Recovered/Resolved]

NARRATIVE: CASE EVENT DATE: 20131029
